FAERS Safety Report 9929218 (Version 2)
Quarter: 2014Q3

REPORT INFORMATION
  Report Type: Spontaneous
  Country: US (occurrence: US)
  Receive Date: 20140227
  Receipt Date: 20140926
  Transmission Date: 20150326
  Serious: Yes (Life-Threatening, Hospitalization, Other)
  Sender: FDA-Public Use
  Company Number: US-BAYER-2014-029298

PATIENT
  Age: 41 Year
  Sex: Female
  Weight: 56.69 kg

DRUGS (17)
  1. KEPPRA [Concomitant]
     Active Substance: LEVETIRACETAM
     Indication: CONVULSION PROPHYLAXIS
     Dosage: 1 G, NASOGASTRIC Q12
  2. DOLOPHINE [Concomitant]
     Active Substance: METHADONE HYDROCHLORIDE
     Dosage: 5 MG, NASOGASTRIC Q6
  3. PHENTERMINE HYDROCHLORIDE. [Concomitant]
     Active Substance: PHENTERMINE HYDROCHLORIDE
     Indication: WEIGHT DECREASED
     Dosage: 37.5 MG, EVERY DAY AT 9:00AM
     Route: 048
  4. MANNITOL. [Concomitant]
     Active Substance: MANNITOL
     Indication: CEREBRAL OEDEMA MANAGEMENT
     Dosage: 25 MG, UNK
  5. ZOLOFT [Concomitant]
     Active Substance: SERTRALINE HYDROCHLORIDE
  6. PEPCID [Concomitant]
     Active Substance: FAMOTIDINE
     Dosage: 20 MG, NASOGASTRIC
  7. ZYRTEC [Concomitant]
     Active Substance: CETIRIZINE HYDROCHLORIDE
  8. COLACE [Concomitant]
     Active Substance: DOCUSATE SODIUM
     Dosage: 10 MG,  NASOGASTRIC Q 12
  9. POTASSIUM CHLORIDE. [Concomitant]
     Active Substance: POTASSIUM CHLORIDE
     Dosage: 20 MEQ, UNASOGASTRIC Q12,
  10. NICARDIPINE [Suspect]
     Active Substance: NICARDIPINE
     Indication: BLOOD PRESSURE SYSTOLIC
  11. YAZ [Suspect]
     Active Substance: DROSPIRENONE\ETHINYL ESTRADIOL
     Indication: CONTRACEPTION
     Dosage: UNK
     Dates: start: 20090923, end: 20100702
  12. GIANVI [Suspect]
     Active Substance: DROSPIRENONE\ETHINYL ESTRADIOL
     Indication: CONTRACEPTION
     Dosage: UNK
     Dates: start: 20100702, end: 201112
  13. ZOLPIDEM [Concomitant]
     Active Substance: ZOLPIDEM\ZOLPIDEM TARTRATE
     Dosage: 10 MG, HS
     Route: 048
  14. YAZ [Suspect]
     Active Substance: DROSPIRENONE\ETHINYL ESTRADIOL
     Indication: CONTRACEPTION
     Dosage: UNK
     Dates: start: 20070911, end: 20080909
  15. LACOSAMIDE [Concomitant]
     Active Substance: LACOSAMIDE
     Dosage: 200 MG, NASOGASTRIC Q12
  16. OCELLA [Suspect]
     Active Substance: DROSPIRENONE\ETHINYL ESTRADIOL
     Indication: CONTRACEPTION
     Dosage: UNK
     Dates: start: 20081018, end: 20090817
  17. BEYAZ [Suspect]
     Active Substance: DROSPIRENONE\ETHINYL ESTRADIOL\LEVOMEFOLATE CALCIUM
     Indication: CONTRACEPTION
     Dosage: UNK
     Dates: start: 20111227, end: 20121030

REACTIONS (23)
  - Cerebral artery thrombosis [None]
  - Abasia [None]
  - Deformity [None]
  - Diplopia [None]
  - Cerebral haemorrhage [None]
  - Brain injury [None]
  - Transverse sinus thrombosis [None]
  - Speech disorder [None]
  - Impaired self-care [None]
  - Jugular vein thrombosis [None]
  - Activities of daily living impaired [None]
  - Anhedonia [None]
  - Embolic stroke [None]
  - Dysstasia [None]
  - Injury [None]
  - Agraphia [None]
  - Pain [None]
  - Musculoskeletal disorder [None]
  - Intracranial venous sinus thrombosis [None]
  - Impaired work ability [None]
  - Thrombosis [None]
  - Cognitive disorder [None]
  - Dysphagia [None]

NARRATIVE: CASE EVENT DATE: 20121030
